FAERS Safety Report 24772284 (Version 2)
Quarter: 2025Q1

REPORT INFORMATION
  Report Type: Report from Study
  Country: US (occurrence: US)
  Receive Date: 20241224
  Receipt Date: 20250113
  Transmission Date: 20250409
  Serious: Yes (Other)
  Sender: BRISTOL-MYERS SQUIBB COMPANY
  Company Number: US-BMS-IMIDS-REMS-SI-12250962

PATIENT
  Age: 84 Year
  Sex: Male

DRUGS (1)
  1. REVLIMID [Suspect]
     Active Substance: LENALIDOMIDE
     Indication: Plasma cell myeloma
     Dosage: FREQUENCY: TAKE 1 CAPSULE ONCE DAILY ON DAYS 1 THROUGH 14 OF EACH 21 DAY CYCLE
     Route: 048
     Dates: start: 20241204, end: 20241224

REACTIONS (4)
  - Back pain [Unknown]
  - Full blood count decreased [Unknown]
  - Liver disorder [Unknown]
  - Off label use [Unknown]

NARRATIVE: CASE EVENT DATE: 20241210
